FAERS Safety Report 9915650 (Version 2)
Quarter: 2014Q1

REPORT INFORMATION
  Report Type: Spontaneous
  Country: GB (occurrence: None)
  Receive Date: 20140218
  Receipt Date: 20140226
  Transmission Date: 20141002
  Serious: Yes (Other)
  Sender: FDA-Public Use
  Company Number: AUR-APL-2014-01522

PATIENT
  Sex: Male
  Weight: 80 kg

DRUGS (6)
  1. RAMIPRIL [Suspect]
     Indication: PRODUCT USED FOR UNKNOWN INDICATION
     Dates: start: 20140109, end: 20140115
  2. ASPIRIN (ACETYLSALICYLIC ACID) [Concomitant]
  3. BISOPROLOL (BISOPOLOL) [Concomitant]
  4. LANSOPRAZOLE (LANSOPRAZOLE) [Concomitant]
  5. NITROLINGUAL (GLYCERYL TRINITRATE) [Concomitant]
  6. PRASUGREL(PRASUGREL) [Concomitant]

REACTIONS (3)
  - Swelling face [None]
  - Lip swelling [None]
  - Local swelling [None]
